FAERS Safety Report 8397270-4 (Version None)
Quarter: 2012Q2

REPORT INFORMATION
  Report Type: 
  Country: None (occurrence: None)
  Receive Date: 20120531
  Receipt Date: 20120525
  Transmission Date: 20120825
  Serious: Yes (Other)
  Sender: FDA-Public Use
  Company Number: US-AMGEN-USASP2012033401

PATIENT
  Age: 50 Year
  Sex: Female

DRUGS (3)
  1. HORMONES [Concomitant]
     Dosage: UNK
  2. XGEVA [Suspect]
     Indication: PROPHYLAXIS
     Dosage: UNK UNK, Q4WK
     Dates: start: 20120101
  3. ZOMETA [Concomitant]
     Dosage: UNK

REACTIONS (5)
  - RASH [None]
  - PRURITUS [None]
  - BLINDNESS UNILATERAL [None]
  - INJECTION SITE RASH [None]
  - OPTIC NERVE DISORDER [None]
